FAERS Safety Report 4596358-3 (Version None)
Quarter: 2005Q1

REPORT INFORMATION
  Report Type: 
  Country: None (occurrence: None)
  Receive Date: 20050302
  Receipt Date: 20050223
  Transmission Date: 20050727
  Serious: Yes (Other)
  Sender: FDA-Public Use
  Company Number: PHEH2005US02378

PATIENT
  Age: 77 Year
  Sex: Female

DRUGS (1)
  1. DIOVAN [Suspect]
     Route: 048

REACTIONS (5)
  - BIOPSY SKIN ABNORMAL [None]
  - DERMATITIS ATOPIC [None]
  - PRURITUS [None]
  - RASH [None]
  - STAPHYLOCOCCAL INFECTION [None]
